FAERS Safety Report 7417143-0 (Version None)
Quarter: 2011Q2

REPORT INFORMATION
  Report Type: 
  Country: None (occurrence: None)
  Receive Date: 20110415
  Receipt Date: 20110225
  Transmission Date: 20111010
  Serious: Yes (Other)
  Sender: FDA-Public Use
  Company Number: US-BAYER-201036667NA

PATIENT
  Sex: Female
  Weight: 59 kg

DRUGS (3)
  1. YASMIN [Suspect]
     Indication: PRODUCT USED FOR UNKNOWN INDICATION
     Route: 048
     Dates: start: 20080101
  2. BACTRIM [Concomitant]
     Dosage: UNK
     Dates: start: 20090724
  3. LEXAPRO [Concomitant]
     Dosage: UNK
     Dates: start: 20090101

REACTIONS (4)
  - CHOLECYSTITIS CHRONIC [None]
  - URINARY TRACT INFECTION [None]
  - OROPHARYNGEAL PAIN [None]
  - CHOLECYSTECTOMY [None]
